FAERS Safety Report 13771720 (Version 2)
Quarter: 2017Q3

REPORT INFORMATION
  Report Type: Spontaneous
  Country: US (occurrence: US)
  Receive Date: 20170720
  Receipt Date: 20170904
  Transmission Date: 20171127
  Serious: No
  Sender: FDA-Public Use
  Company Number: US-PFIZER INC-2017312424

PATIENT
  Age: 53 Year
  Sex: Female
  Weight: 81.63 kg

DRUGS (3)
  1. DOXYCYCLINE HYCLATE. [Suspect]
     Active Substance: DOXYCYCLINE HYCLATE
     Dosage: UNK
  2. METROGEL [Suspect]
     Active Substance: METRONIDAZOLE
     Dosage: UNK
  3. MIRVASO [Suspect]
     Active Substance: BRIMONIDINE TARTRATE
     Dosage: UNK

REACTIONS (1)
  - Drug ineffective [Unknown]
